FAERS Safety Report 22365493 (Version 2)
Quarter: 2023Q2

REPORT INFORMATION
  Report Type: Spontaneous
  Country: ES (occurrence: ES)
  Receive Date: 20230525
  Receipt Date: 20230615
  Transmission Date: 20230721
  Serious: Yes (Hospitalization, Other)
  Sender: FDA-Public Use
  Company Number: ES-JNJFOC-20230552882

PATIENT
  Age: 82 Year
  Sex: Female
  Weight: 46 kg

DRUGS (5)
  1. IMBRUVICA [Suspect]
     Active Substance: IBRUTINIB
     Indication: Chronic lymphocytic leukaemia
     Dosage: THERAPY DATE: DURING THE INFECTION IBRUTINIB WAS WITHDRAWN AND REINTRODUCED IN FEB-2023.
     Route: 048
     Dates: start: 20190522
  2. IMBRUVICA [Suspect]
     Active Substance: IBRUTINIB
     Indication: Chronic lymphocytic leukaemia
     Dosage: END DATE WAS IN 2019
     Route: 048
     Dates: start: 2019
  3. IMBRUVICA [Suspect]
     Active Substance: IBRUTINIB
     Indication: Chronic lymphocytic leukaemia
     Dosage: THERAPY DATE: DURING THE INFECTION IBRUTINIB WAS WITHDRAWN AND REINTRODUCED IN FEB-2023.
     Route: 048
     Dates: start: 20230315, end: 20230418
  4. IMBRUVICA [Suspect]
     Active Substance: IBRUTINIB
     Indication: Chronic lymphocytic leukaemia
     Dosage: THERAPY DATE: DURING THE INFECTION IBRUTINIB WAS WITHDRAWN AND REINTRODUCED IN FEB-2023.
     Route: 048
     Dates: start: 202302
  5. IMBRUVICA [Suspect]
     Active Substance: IBRUTINIB
     Indication: Chronic lymphocytic leukaemia
     Dosage: THERAPY DATE: DURING THE INFECTION IBRUTINIB WAS WITHDRAWN AND REINTRODUCED IN FEB-2023.
     Route: 048
     Dates: start: 20230201

REACTIONS (6)
  - Posterior reversible encephalopathy syndrome [Recovered/Resolved]
  - Off label use [Unknown]
  - Hallucination, visual [Unknown]
  - COVID-19 pneumonia [Recovered/Resolved]
  - Chronic lymphocytic leukaemia [Unknown]
  - Pleural effusion [Unknown]

NARRATIVE: CASE EVENT DATE: 20221101
